FAERS Safety Report 6549100-0 (Version None)
Quarter: 2010Q1

REPORT INFORMATION
  Report Type: 
  Country: None (occurrence: None)
  Receive Date: 20100125
  Receipt Date: 20100118
  Transmission Date: 20100710
  Serious: Yes (Other)
  Sender: FDA-Public Use
  Company Number: ES-ROCHE-680410

PATIENT
  Age: 58 Year
  Sex: Male

DRUGS (5)
  1. TAMIFLU [Suspect]
     Indication: INFLUENZA
     Route: 048
     Dates: start: 20091028, end: 20091030
  2. TAMIFLU [Suspect]
     Route: 048
     Dates: start: 20091105, end: 20091110
  3. AZITHROMYCIN [Concomitant]
     Indication: INFLUENZA
     Dosage: DRUG NAME: AZITROMICINE
     Route: 042
     Dates: start: 20091028, end: 20091103
  4. METHYLPREDNISOLONE [Concomitant]
     Indication: INFLUENZA
     Route: 042
     Dates: start: 20091028
  5. CEFOTAXIME [Concomitant]
     Dosage: DRUG NAME: CEPHOTAXIME
     Route: 042
     Dates: start: 20091028, end: 20091103

REACTIONS (1)
  - CHOLESTASIS [None]
